FAERS Safety Report 24732685 (Version 2)
Quarter: 2024Q4

REPORT INFORMATION
  Report Type: Report from Study
  Country: JP (occurrence: JP)
  Receive Date: 20241213
  Receipt Date: 20241222
  Transmission Date: 20250115
  Serious: Yes (Other)
  Sender: ALEXION PHARMACEUTICALS
  Company Number: JP-ASTRAZENECA-220074735_011820_P_1

PATIENT
  Age: 16 Year
  Weight: 39 kg

DRUGS (22)
  1. KOSELUGO [Suspect]
     Active Substance: SELUMETINIB
     Indication: Neurofibromatosis
     Dosage: 60 MILLIGRAM
  2. KOSELUGO [Suspect]
     Active Substance: SELUMETINIB
     Dosage: 60 MILLIGRAM
     Route: 048
  3. KOSELUGO [Suspect]
     Active Substance: SELUMETINIB
     Dosage: 60 MILLIGRAM
  4. KOSELUGO [Suspect]
     Active Substance: SELUMETINIB
     Dosage: 60 MILLIGRAM
     Route: 048
  5. KOSELUGO [Suspect]
     Active Substance: SELUMETINIB
     Indication: Neurofibromatosis
     Dosage: 60 MILLIGRAM
  6. KOSELUGO [Suspect]
     Active Substance: SELUMETINIB
     Dosage: 60 MILLIGRAM
     Route: 048
  7. KOSELUGO [Suspect]
     Active Substance: SELUMETINIB
     Dosage: 60 MILLIGRAM
  8. KOSELUGO [Suspect]
     Active Substance: SELUMETINIB
     Dosage: 60 MILLIGRAM
     Route: 048
  9. KOSELUGO [Suspect]
     Active Substance: SELUMETINIB
     Dosage: 70 MILLIGRAM
  10. KOSELUGO [Suspect]
     Active Substance: SELUMETINIB
     Dosage: 70 MILLIGRAM
     Route: 048
  11. KOSELUGO [Suspect]
     Active Substance: SELUMETINIB
     Dosage: 70 MILLIGRAM
  12. KOSELUGO [Suspect]
     Active Substance: SELUMETINIB
     Dosage: 70 MILLIGRAM
     Route: 048
  13. KOSELUGO [Suspect]
     Active Substance: SELUMETINIB
     Dosage: 50 MILLIGRAM
  14. KOSELUGO [Suspect]
     Active Substance: SELUMETINIB
     Dosage: 50 MILLIGRAM
     Route: 048
  15. KOSELUGO [Suspect]
     Active Substance: SELUMETINIB
     Dosage: 50 MILLIGRAM
  16. KOSELUGO [Suspect]
     Active Substance: SELUMETINIB
     Dosage: 50 MILLIGRAM
     Route: 048
  17. SILVER SULFADIAZINE [Concomitant]
     Active Substance: SILVER SULFADIAZINE
     Indication: Decubitus ulcer
     Dosage: UNK
  18. SILVER SULFADIAZINE [Concomitant]
     Active Substance: SILVER SULFADIAZINE
     Dosage: UNK
     Route: 062
  19. SILVER SULFADIAZINE [Concomitant]
     Active Substance: SILVER SULFADIAZINE
     Dosage: UNK
  20. SILVER SULFADIAZINE [Concomitant]
     Active Substance: SILVER SULFADIAZINE
     Dosage: UNK
     Route: 062
  21. WHITE PETROLATUM [Concomitant]
     Active Substance: PETROLATUM
     Indication: Decubitus ulcer
     Dosage: UNK
     Route: 065
  22. WHITE PETROLATUM [Concomitant]
     Active Substance: PETROLATUM
     Dosage: UNK
     Route: 065

REACTIONS (6)
  - Cytopenia [Not Recovered/Not Resolved]
  - Dermatitis [Not Recovered/Not Resolved]
  - Paronychia [Not Recovered/Not Resolved]
  - Ejection fraction decreased [Recovering/Resolving]
  - Blood bilirubin increased [Recovering/Resolving]
  - Nasopharyngitis [Unknown]
